FAERS Safety Report 12285200 (Version 1)
Quarter: 2016Q2

REPORT INFORMATION
  Report Type: Spontaneous
  Country: US (occurrence: None)
  Receive Date: 20160419
  Receipt Date: 20160419
  Transmission Date: 20160815
  Serious: No
  Sender: FDA-Public Use
  Company Number: None

PATIENT
  Sex: Male

DRUGS (1)
  1. PENICILLIN [Suspect]
     Active Substance: PENICILLIN

REACTIONS (5)
  - Drug hypersensitivity [None]
  - Drug dose omission [None]
  - Neuropathy peripheral [None]
  - Laceration [None]
  - Memory impairment [None]
